FAERS Safety Report 8762963 (Version 1)
Quarter: 2012Q4

REPORT INFORMATION
  Report Type: Spontaneous
  Country: US (occurrence: None)
  Receive Date: 20120831
  Receipt Date: 20120831
  Transmission Date: 20130627
  Serious: Yes (Other)
  Sender: FDA-Public Use
  Company Number: None

PATIENT
  Age: 79 Year
  Sex: Male
  Weight: 67.59 kg

DRUGS (1)
  1. GABAPENTIN [Suspect]
     Indication: HEADACHE
     Dates: start: 2008, end: 2012

REACTIONS (3)
  - Fatigue [None]
  - Movement disorder [None]
  - Vision blurred [None]
